FAERS Safety Report 12302630 (Version 1)
Quarter: 2016Q2

REPORT INFORMATION
  Report Type: Spontaneous
  Country: US (occurrence: US)
  Receive Date: 20160425
  Receipt Date: 20160425
  Transmission Date: 20160815
  Serious: No
  Sender: FDA-Public Use
  Company Number: US-SA-2015SA160242

PATIENT
  Age: 81 Year
  Sex: Female

DRUGS (1)
  1. LOVENOX [Suspect]
     Active Substance: ENOXAPARIN SODIUM
     Indication: THROMBOSIS
     Dosage: START DATE: ^HAVE HAD 52 SHOTS^
     Route: 065

REACTIONS (3)
  - Pruritus [Unknown]
  - Skin disorder [Unknown]
  - Drug dose omission [Unknown]
